FAERS Safety Report 5052708-5 (Version None)
Quarter: 2006Q3

REPORT INFORMATION
  Report Type: 
  Country: None (occurrence: None)
  Receive Date: 20060717
  Receipt Date: 20060706
  Transmission Date: 20061208
  Serious: Yes (Life-Threatening, Hospitalization, Other)
  Sender: FDA-Public Use
  Company Number: US-JNJFOC-20060701080

PATIENT
  Age: 26 Year
  Sex: Female

DRUGS (11)
  1. REMICADE [Suspect]
     Route: 050
  2. REMICADE [Suspect]
     Route: 050
  3. REMICADE [Suspect]
     Route: 050
  4. REMICADE [Suspect]
     Dosage: 5MG/KG TOTAL OF SIX DOSES 07-JAN-05 THROUGH 14-NOV-05
     Route: 050
  5. REMICADE [Suspect]
     Dosage: 5 MG/KG TOTAL OF SIX DOSES 23-JAN-04 THROUGH 05-NOV-04
     Route: 050
  6. REMICADE [Suspect]
     Dosage: 5MG/KG 12-DEC-03 AND 26-DEC-03
     Route: 050
  7. REMICADE [Suspect]
     Dosage: 5 MG/KG RECEIVED FOUR DOSES 04-SEP-02 THROUGH 13-DEC-02
     Route: 050
  8. REMICADE [Suspect]
     Indication: TRANSMISSION OF DRUG VIA SEMEN
     Dosage: UNKNOWN NUMBER OF INFUSIONS IN YEAR PRIOR TO BASELINE
     Route: 050
  9. ACETAMINOPHEN [Concomitant]
     Indication: PREMEDICATION
  10. ANTIHISTAMINES [Concomitant]
     Indication: PREMEDICATION
  11. STEROIDS [Concomitant]
     Indication: PREMEDICATION

REACTIONS (3)
  - DRUG EXPOSURE DURING PREGNANCY [None]
  - PREMATURE LABOUR [None]
  - PREMATURE SEPARATION OF PLACENTA [None]
